FAERS Safety Report 7802201-9 (Version None)
Quarter: 2011Q4

REPORT INFORMATION
  Report Type: 
  Country: None (occurrence: None)
  Receive Date: 20111007
  Receipt Date: 20110929
  Transmission Date: 20120403
  Serious: Yes (Other)
  Sender: FDA-Public Use
  Company Number: FR-JNJFOC-20110902450

PATIENT
  Age: 60 Year
  Sex: Male
  Weight: 67 kg

DRUGS (15)
  1. IMURAN [Suspect]
     Indication: COLITIS ULCERATIVE
     Dates: start: 20090601, end: 20100601
  2. SPASFON [Concomitant]
     Indication: ABDOMINAL PAIN
     Route: 048
  3. VALGANCICLOVIR [Concomitant]
     Indication: CYTOMEGALOVIRUS INFECTION
     Route: 048
     Dates: start: 20110603
  4. IMURAN [Suspect]
     Dates: start: 20040101
  5. REMICADE [Suspect]
     Route: 042
     Dates: start: 20100701
  6. ADANCOR [Concomitant]
     Indication: ISCHAEMIC HEART DISEASE PROPHYLAXIS
     Route: 048
  7. REMICADE [Suspect]
     Indication: COLITIS ULCERATIVE
     Route: 042
     Dates: start: 20100224
  8. ATORVASTATIN CALCIUM [Concomitant]
     Indication: HYPERCHOLESTEROLAEMIA
     Route: 048
  9. AMITRIPTYLINE HCL [Concomitant]
     Indication: DEPRESSION
     Route: 048
     Dates: start: 20110603
  10. PREDNISOLONE [Concomitant]
     Indication: COLITIS ULCERATIVE
  11. FUNGIZONE [Concomitant]
     Indication: ANTIBIOTIC THERAPY
     Route: 048
     Dates: start: 20110603, end: 20110621
  12. SECTRAL [Concomitant]
     Indication: HYPERTENSION
     Route: 048
  13. PREDNISOLONE [Concomitant]
  14. REMICADE [Suspect]
     Route: 042
     Dates: start: 20110201
  15. PREDNISOLONE [Concomitant]

REACTIONS (4)
  - CYTOMEGALOVIRUS INFECTION [None]
  - COLITIS ULCERATIVE [None]
  - ANAEMIA [None]
  - WEIGHT DECREASED [None]
